FAERS Safety Report 14675793 (Version 1)
Quarter: 2018Q1

REPORT INFORMATION
  Report Type: Spontaneous
  Country: US (occurrence: US)
  Receive Date: 20180323
  Receipt Date: 20180323
  Transmission Date: 20180509
  Serious: Yes (Other)
  Sender: FDA-Public Use
  Company Number: None

PATIENT
  Age: 62 Year
  Sex: Female
  Weight: 87.75 kg

DRUGS (6)
  1. RESTASIS [Suspect]
     Active Substance: CYCLOSPORINE
     Indication: DRY EYE
     Dosage: ?          QUANTITY:1 DROP(S);?
     Route: 047
     Dates: start: 20180317, end: 20180322
  2. VITAMIN C [Concomitant]
     Active Substance: ASCORBIC ACID
  3. THYROID [Concomitant]
     Active Substance: LEVOTHYROXINE\LIOTHYRONINE
  4. FISH OIL [Concomitant]
     Active Substance: FISH OIL
  5. MULTI VITAMIN [Concomitant]
     Active Substance: VITAMINS
  6. PROBIOTICS [Concomitant]
     Active Substance: PROBIOTICS NOS

REACTIONS (4)
  - Paraesthesia [None]
  - Hypoaesthesia [None]
  - Dizziness [None]
  - Vertigo [None]

NARRATIVE: CASE EVENT DATE: 20180321
